FAERS Safety Report 4746441-4 (Version None)
Quarter: 2005Q3

REPORT INFORMATION
  Report Type: 
  Country: None (occurrence: None)
  Receive Date: 20050816
  Receipt Date: 20050816
  Transmission Date: 20060218
  Serious: No
  Sender: FDA-Public Use
  Company Number: None

PATIENT
  Age: 37 Year
  Sex: Female
  Weight: 70.3075 kg

DRUGS (1)
  1. CYMBALTA [Suspect]
     Indication: DEPRESSION
     Dosage: 60MG 1XAM ORAL
     Route: 048

REACTIONS (12)
  - ABNORMAL DREAMS [None]
  - CONFUSIONAL STATE [None]
  - DIARRHOEA [None]
  - DRUG WITHDRAWAL SYNDROME [None]
  - HEADACHE [None]
  - HOT FLUSH [None]
  - IMPAIRED DRIVING ABILITY [None]
  - MOOD SWINGS [None]
  - NIGHTMARE [None]
  - PYREXIA [None]
  - TINNITUS [None]
  - VERTIGO [None]
